FAERS Safety Report 20882257 (Version 1)
Quarter: 2022Q2

REPORT INFORMATION
  Report Type: Spontaneous
  Country: US (occurrence: US)
  Receive Date: 20220527
  Receipt Date: 20220527
  Transmission Date: 20220721
  Serious: No
  Sender: FDA-Public Use
  Company Number: US-JNJFOC-20220540486

PATIENT
  Age: 36 Year
  Sex: Male

DRUGS (1)
  1. MENS ROGAINE EXTRA STRENGTH [Suspect]
     Active Substance: MINOXIDIL
     Indication: Alopecia
     Dosage: 1/2 A CAP ONCE THAT SATURDAY TEST IT OUT,
     Route: 061
     Dates: start: 20220514

REACTIONS (3)
  - Application site warmth [Recovered/Resolved]
  - Application site rash [Recovered/Resolved]
  - Application site ulcer [Recovered/Resolved]

NARRATIVE: CASE EVENT DATE: 20220515
